FAERS Safety Report 21481642 (Version 1)
Quarter: 2022Q4

REPORT INFORMATION
  Report Type: Spontaneous
  Country: CN (occurrence: CN)
  Receive Date: 20221020
  Receipt Date: 20221020
  Transmission Date: 20230113
  Serious: Yes (Other)
  Sender: FDA-Public Use
  Company Number: None

PATIENT
  Age: 44 Year
  Sex: Female
  Weight: 53 kg

DRUGS (6)
  1. CYCLOPHOSPHAMIDE [Suspect]
     Active Substance: CYCLOPHOSPHAMIDE
     Indication: Breast cancer female
     Dosage: 900 MG ONCE DAILY (DILUTED WITH NS 45ML, SECOND CHEMOTHERAPY)
     Route: 042
     Dates: start: 20220705, end: 20220705
  2. CYCLOPHOSPHAMIDE [Suspect]
     Active Substance: CYCLOPHOSPHAMIDE
     Indication: Chemotherapy
  3. SODIUM CHLORIDE [Suspect]
     Active Substance: SODIUM CHLORIDE
     Indication: Medication dilution
     Dosage: 45 ML ONCE DAILY (DILUTED WITH CYCLOPHOSPHAMIDE 900 MG)
     Route: 042
     Dates: start: 20220705, end: 20220705
  4. SODIUM CHLORIDE [Suspect]
     Active Substance: SODIUM CHLORIDE
     Dosage: 250 ML ONCE DAILY (DILUTED WITH DOCETAXEL 120 MG)
     Route: 041
     Dates: start: 20220705, end: 20220705
  5. DOCETAXEL [Suspect]
     Active Substance: DOCETAXEL
     Indication: Breast cancer female
     Dosage: 120 MG ONCE DAILY (DILUTED WITH NS 250ML, SECOND CHEMOTHERAPY)
     Route: 041
     Dates: start: 20220705, end: 20220705
  6. DOCETAXEL [Suspect]
     Active Substance: DOCETAXEL
     Indication: Chemotherapy

REACTIONS (2)
  - White blood cell count decreased [Recovered/Resolved]
  - Agranulocytosis [Recovered/Resolved]

NARRATIVE: CASE EVENT DATE: 20220711
